FAERS Safety Report 18153668 (Version 1)
Quarter: 2020Q3

REPORT INFORMATION
  Report Type: Spontaneous
  Country: US (occurrence: US)
  Receive Date: 20200816
  Receipt Date: 20200816
  Transmission Date: 20201103
  Serious: Yes (Other)
  Sender: FDA-Public Use
  Company Number: NVSC2020US222263

PATIENT

DRUGS (2)
  1. IBRANCE [Suspect]
     Active Substance: PALBOCICLIB
     Indication: BREAST CANCER
     Dosage: 125 MG, QD
     Route: 048
     Dates: start: 20191219
  2. FEMARA [Suspect]
     Active Substance: LETROZOLE
     Indication: BREAST CANCER
     Dosage: UNK, QD (AS PRESCRIBED BY MD)
     Route: 048

REACTIONS (11)
  - Weight increased [Unknown]
  - Fatigue [Unknown]
  - Abdominal pain upper [Unknown]
  - Pneumothorax [Not Recovered/Not Resolved]
  - Diverticulitis [Unknown]
  - Colitis [Unknown]
  - Product dose omission issue [Unknown]
  - Lethargy [Unknown]
  - Headache [Not Recovered/Not Resolved]
  - Alopecia [Not Recovered/Not Resolved]
  - Constipation [Recovering/Resolving]

NARRATIVE: CASE EVENT DATE: 202006
